FAERS Safety Report 21815553 (Version 1)
Quarter: 2023Q1

REPORT INFORMATION
  Report Type: Spontaneous
  Country: SE (occurrence: SE)
  Receive Date: 20230104
  Receipt Date: 20230104
  Transmission Date: 20230418
  Serious: Yes (Other)
  Sender: FDA-Public Use
  Company Number: None

PATIENT
  Age: 76 Year
  Sex: Female
  Weight: 57 kg

DRUGS (5)
  1. JARDIANCE [Suspect]
     Active Substance: EMPAGLIFLOZIN
     Indication: Type 2 diabetes mellitus
     Route: 048
     Dates: start: 20220503, end: 20220515
  2. Metformin Accord 500 mg Filmdragerad tablett [Concomitant]
     Indication: Product used for unknown indication
     Route: 048
  3. ESOMEPRAZOLE MAGNESIUM [Concomitant]
     Active Substance: ESOMEPRAZOLE MAGNESIUM
     Indication: Product used for unknown indication
     Dosage: 20 MG 1X1-2 VB
     Route: 048
  4. Candesartan Krka 8 mg Tablett [Concomitant]
     Indication: Product used for unknown indication
     Route: 048
  5. Ovesterin 0,5 mg Vagitorium [Concomitant]
     Indication: Product used for unknown indication
     Dosage: 0,5 MG 1 VAG 2 GGR/VECKA
     Route: 067

REACTIONS (2)
  - Lip blister [Recovered/Resolved]
  - Oral discomfort [Recovered/Resolved]

NARRATIVE: CASE EVENT DATE: 20220506
